FAERS Safety Report 23774231 (Version 1)
Quarter: 2024Q2

REPORT INFORMATION
  Report Type: Report from Study
  Country: US (occurrence: None)
  Receive Date: 20240423
  Receipt Date: 20240423
  Transmission Date: 20240716
  Serious: Yes (Other)
  Sender: FDA-Public Use
  Company Number: 2024A091999

PATIENT
  Age: 28094 Day
  Sex: Female

DRUGS (2)
  1. FARXIGA [Suspect]
     Active Substance: DAPAGLIFLOZIN PROPANEDIOL
     Route: 048
     Dates: end: 20240327
  2. CARDIZEM [Concomitant]
     Active Substance: DILTIAZEM HYDROCHLORIDE

REACTIONS (5)
  - Renal injury [Recovered/Resolved]
  - Loss of consciousness [Unknown]
  - Cardiac disorder [Recovering/Resolving]
  - Heart rate decreased [Unknown]
  - Intentional dose omission [Unknown]

NARRATIVE: CASE EVENT DATE: 20240327
